FAERS Safety Report 23032255 (Version 1)
Quarter: 2023Q4

REPORT INFORMATION
  Report Type: Spontaneous
  Country: GB (occurrence: GB)
  Receive Date: 20231005
  Receipt Date: 20231005
  Transmission Date: 20240109
  Serious: Yes (Other)
  Sender: FDA-Public Use
  Company Number: GB-MHRA-MED-202203161446231820-OOCPE

PATIENT
  Sex: Female

DRUGS (1)
  1. YASMIN [Suspect]
     Active Substance: DROSPIRENONE\ETHINYL ESTRADIOL
     Dosage: 1 DF, QD
     Route: 048

REACTIONS (3)
  - Immunodeficiency [Recovered/Resolved with Sequelae]
  - Influenza [Recovered/Resolved with Sequelae]
  - Nasopharyngitis [Recovered/Resolved with Sequelae]
